FAERS Safety Report 6903306-7 (Version None)
Quarter: 2010Q3

REPORT INFORMATION
  Report Type: 
  Country: None (occurrence: None)
  Receive Date: 20100803
  Receipt Date: 20080915
  Transmission Date: 20110219
  Serious: No
  Sender: FDA-Public Use
  Company Number: US-PFIZER INC-2008045825

PATIENT
  Sex: Female
  Weight: 46.3 kg

DRUGS (2)
  1. LYRICA [Suspect]
     Indication: NEURALGIA
     Dates: start: 20080201
  2. NEURONTIN [Suspect]
     Indication: NEURALGIA
     Dates: start: 20080101, end: 20080201

REACTIONS (1)
  - NEURALGIA [None]
